FAERS Safety Report 23945019 (Version 11)
Quarter: 2025Q2

REPORT INFORMATION
  Report Type: Report from Study
  Country: US (occurrence: US)
  Receive Date: 20240606
  Receipt Date: 20250604
  Transmission Date: 20250717
  Serious: Yes (Hospitalization, Other)
  Sender: TAKEDA
  Company Number: US-TAKEDA-2024TUS017562

PATIENT
  Age: 73 Year
  Sex: Female
  Weight: 49.9 kg

DRUGS (25)
  1. TEDUGLUTIDE [Suspect]
     Active Substance: TEDUGLUTIDE
     Indication: Short-bowel syndrome
     Dosage: 1.2 MILLIGRAM, QD
  2. TEDUGLUTIDE [Suspect]
     Active Substance: TEDUGLUTIDE
     Dosage: 1.2 MILLIGRAM, QD
  3. TEDUGLUTIDE [Suspect]
     Active Substance: TEDUGLUTIDE
     Dosage: 1.2 MILLIGRAM, QD
  4. TEDUGLUTIDE [Suspect]
     Active Substance: TEDUGLUTIDE
     Dosage: 1.2 MILLIGRAM, QD
  5. TEDUGLUTIDE [Suspect]
     Active Substance: TEDUGLUTIDE
     Dosage: 1.2 MILLIGRAM, QD
  6. TEDUGLUTIDE [Suspect]
     Active Substance: TEDUGLUTIDE
     Dosage: 1.2 MILLIGRAM, QD
  7. TEDUGLUTIDE [Suspect]
     Active Substance: TEDUGLUTIDE
     Dosage: 1.2 MILLIGRAM, QD
  8. TEDUGLUTIDE [Suspect]
     Active Substance: TEDUGLUTIDE
     Dosage: 2.7 MILLIGRAM, QD
  9. TEDUGLUTIDE [Suspect]
     Active Substance: TEDUGLUTIDE
     Dosage: 2.7 MILLIGRAM, QD
  10. TEDUGLUTIDE [Suspect]
     Active Substance: TEDUGLUTIDE
     Dosage: 2.7 MILLIGRAM, QD
  11. HUMIRA [Suspect]
     Active Substance: ADALIMUMAB
     Indication: Product used for unknown indication
  12. OMEPRAZOLE [Suspect]
     Active Substance: OMEPRAZOLE
     Indication: Product used for unknown indication
  13. DUPIXENT [Concomitant]
     Active Substance: DUPILUMAB
  14. PREDNISONE [Concomitant]
     Active Substance: PREDNISONE
  15. GABAPENTIN [Concomitant]
     Active Substance: GABAPENTIN
  16. GABAPENTIN [Concomitant]
     Active Substance: GABAPENTIN
  17. MAGNESIUM ASCORBATE [Concomitant]
     Active Substance: MAGNESIUM ASCORBATE
  18. SALINE [Concomitant]
     Active Substance: SODIUM CHLORIDE
  19. IMODIUM [Concomitant]
     Active Substance: LOPERAMIDE HYDROCHLORIDE
  20. INDOMETHACIN [Concomitant]
     Active Substance: INDOMETHACIN
  21. VITAMIN B12 [Concomitant]
     Active Substance: CYANOCOBALAMIN
  22. TYLENOL EXTRA STRENGTH [Concomitant]
     Active Substance: ACETAMINOPHEN
  23. ZOLPIDEM TARTRATE [Concomitant]
     Active Substance: ZOLPIDEM TARTRATE
  24. INSULIN NOS [Concomitant]
     Active Substance: INSULIN NOS
     Dosage: 1.2 MILLIGRAM, QD
  25. AMITRIPTYLINE HYDROCHLORIDE [Concomitant]
     Active Substance: AMITRIPTYLINE HYDROCHLORIDE

REACTIONS (32)
  - Renal disorder [Unknown]
  - Weight increased [Recovered/Resolved]
  - Blood pressure increased [Unknown]
  - Malaise [Unknown]
  - Feeling abnormal [Unknown]
  - Multiple allergies [Not Recovered/Not Resolved]
  - Blood magnesium decreased [Not Recovered/Not Resolved]
  - Diarrhoea [Not Recovered/Not Resolved]
  - Muscle spasms [Unknown]
  - Eczema [Not Recovered/Not Resolved]
  - Drug hypersensitivity [Unknown]
  - Dermatitis contact [Unknown]
  - Back pain [Unknown]
  - Fatigue [Unknown]
  - Product dose omission in error [Not Recovered/Not Resolved]
  - Inappropriate schedule of product administration [Recovered/Resolved]
  - Product dose omission issue [Unknown]
  - Herpes zoster [Not Recovered/Not Resolved]
  - Weight decreased [Not Recovered/Not Resolved]
  - Loss of personal independence in daily activities [Not Recovered/Not Resolved]
  - Bowel movement irregularity [Unknown]
  - Dehydration [Unknown]
  - Blood iron decreased [Not Recovered/Not Resolved]
  - Vitamin B12 decreased [Not Recovered/Not Resolved]
  - Nicotinamide decreased [Not Recovered/Not Resolved]
  - Gout [Unknown]
  - Nasopharyngitis [Not Recovered/Not Resolved]
  - Vomiting [Unknown]
  - Nausea [Unknown]
  - Flatulence [Unknown]
  - Abdominal pain [Recovered/Resolved]
  - Decreased appetite [Unknown]

NARRATIVE: CASE EVENT DATE: 20240626
